FAERS Safety Report 26141332 (Version 1)
Quarter: 2025Q4

REPORT INFORMATION
  Report Type: Report from Study
  Country: US (occurrence: US)
  Receive Date: 20251210
  Receipt Date: 20251210
  Transmission Date: 20260119
  Serious: Yes (Other)
  Sender: ABBVIE
  Company Number: US-ABBVIE-6580382

PATIENT
  Age: 73 Year
  Sex: Male

DRUGS (1)
  1. SKYRIZI [Suspect]
     Active Substance: RISANKIZUMAB-RZAA
     Indication: Psoriasis
     Route: 058
     Dates: start: 20210929

REACTIONS (5)
  - Skin cancer [Unknown]
  - Psoriasis [Not Recovered/Not Resolved]
  - Cardiac disorder [Unknown]
  - Back pain [Not Recovered/Not Resolved]
  - Calcinosis [Unknown]

NARRATIVE: CASE EVENT DATE: 20250101
